FAERS Safety Report 7626027-4 (Version None)
Quarter: 2011Q3

REPORT INFORMATION
  Report Type: 
  Country: None (occurrence: None)
  Receive Date: 20110721
  Receipt Date: 20110718
  Transmission Date: 20111222
  Serious: Yes (Death)
  Sender: FDA-Public Use
  Company Number: US-AMGEN-USASP2011036054

PATIENT
  Age: 78 Year
  Sex: Female

DRUGS (2)
  1. NPLATE [Suspect]
     Indication: IDIOPATHIC THROMBOCYTOPENIC PURPURA
     Dosage: 92 A?G, UNK
     Dates: start: 20110316, end: 20110413
  2. CORTICOSTEROIDS [Concomitant]

REACTIONS (1)
  - PANCREATIC CARCINOMA [None]
